FAERS Safety Report 23067130 (Version 1)
Quarter: 2023Q4

REPORT INFORMATION
  Report Type: Spontaneous
  Country: US (occurrence: US)
  Receive Date: 20231016
  Receipt Date: 20231016
  Transmission Date: 20240110
  Serious: No
  Sender: FDA-Public Use
  Company Number: US-SA-SAC20231011000082

PATIENT
  Sex: Female

DRUGS (1)
  1. DUPIXENT [Suspect]
     Active Substance: DUPILUMAB
     Dosage: 300 MG, FREQUENCY OTHER
     Route: 058

REACTIONS (6)
  - Stress [Unknown]
  - Oesophageal disorder [Unknown]
  - Condition aggravated [Unknown]
  - Vision blurred [Unknown]
  - Injection site pain [Unknown]
  - Product preparation error [Unknown]
